FAERS Safety Report 17430508 (Version 4)
Quarter: 2020Q3

REPORT INFORMATION
  Report Type: Spontaneous
  Country: US (occurrence: US)
  Receive Date: 20200218
  Receipt Date: 20200930
  Transmission Date: 20201102
  Serious: No
  Sender: FDA-Public Use
  Company Number: US-VERTEX PHARMACEUTICALS-2020-002783

PATIENT
  Age: 39 Year
  Sex: Female
  Weight: 47 kg

DRUGS (2)
  1. CAYSTON [Concomitant]
     Active Substance: AZTREONAM
     Dosage: UNK
  2. TRIKAFTA [Suspect]
     Active Substance: ELEXACAFTOR\IVACAFTOR\TEZACAFTOR
     Indication: CYSTIC FIBROSIS
     Dosage: ELEXACAFTOR 100 MG, TEZACAFTOR 50 MG, IVACAFTOR 75 MG; IVACAFTOR 150 MG; FREQUENCY UNKNOWN
     Route: 048
     Dates: start: 20191118

REACTIONS (4)
  - Erythema [Not Recovered/Not Resolved]
  - Influenza [Unknown]
  - Pruritus [Recovering/Resolving]
  - Rash [Recovering/Resolving]

NARRATIVE: CASE EVENT DATE: 201912
